FAERS Safety Report 15015672 (Version 1)
Quarter: 2018Q2

REPORT INFORMATION
  Report Type: Spontaneous
  Country: US (occurrence: US)
  Receive Date: 20180615
  Receipt Date: 20180615
  Transmission Date: 20180711
  Serious: Yes (Other)
  Sender: FDA-Public Use
  Company Number: US-SA-2017SA256119

PATIENT
  Age: 51 Year
  Sex: Female
  Weight: 58.96 kg

DRUGS (3)
  1. PARAPLATIN [Concomitant]
     Active Substance: CARBOPLATIN
  2. TAXOTERE [Suspect]
     Active Substance: DOCETAXEL
     Indication: BREAST CANCER FEMALE
     Dosage: 114 MG, Q3W
     Route: 042
     Dates: start: 20140319, end: 20140319
  3. TAXOTERE [Suspect]
     Active Substance: DOCETAXEL
     Dosage: 114 MG, Q3W
     Route: 042
     Dates: start: 20140702, end: 20140702

REACTIONS (2)
  - Psychological trauma [Unknown]
  - Alopecia [Not Recovered/Not Resolved]

NARRATIVE: CASE EVENT DATE: 2014
